FAERS Safety Report 9000236 (Version 1)
Quarter: 2013Q1

REPORT INFORMATION
  Report Type: Spontaneous
  Country: CA (occurrence: CA)
  Receive Date: 20130106
  Receipt Date: 20130106
  Transmission Date: 20140127
  Serious: Yes (Other)
  Sender: FDA-Public Use
  Company Number: CA-TEVA-378990USA

PATIENT
  Age: 2 Month
  Sex: Male

DRUGS (1)
  1. RANITIDINE [Suspect]
     Dosage: 5 ML DAILY;
     Route: 048

REACTIONS (1)
  - Dysphonia [Recovered/Resolved]
